FAERS Safety Report 6317170-0 (Version None)
Quarter: 2009Q3

REPORT INFORMATION
  Report Type: 
  Country: None (occurrence: None)
  Receive Date: 20090819
  Receipt Date: 20090807
  Transmission Date: 20100115
  Serious: Yes (Hospitalization)
  Sender: FDA-Public Use
  Company Number: 238800K09USA

PATIENT
  Age: 46 Year
  Sex: Male

DRUGS (1)
  1. REBIF [Suspect]
     Indication: MULTIPLE SCLEROSIS
     Dosage: NOT REPORTED, SUBCUTANEOUS
     Route: 058
     Dates: start: 20081104

REACTIONS (3)
  - DEPRESSION [None]
  - PARAESTHESIA [None]
  - STRESS [None]
